FAERS Safety Report 5691266-9 (Version None)
Quarter: 2008Q2

REPORT INFORMATION
  Report Type: 
  Country: None (occurrence: None)
  Receive Date: 20080402
  Receipt Date: 20080321
  Transmission Date: 20081010
  Serious: Yes (Hospitalization, Other)
  Sender: FDA-Public Use
  Company Number: US-JNJFOC-20080305727

PATIENT
  Sex: Female
  Weight: 72.58 kg

DRUGS (7)
  1. DURAGESIC-100 [Suspect]
     Indication: PAIN
     Route: 062
  2. ACTIQ [Concomitant]
     Indication: BREAKTHROUGH PAIN
     Route: 048
  3. KLONOPIN [Concomitant]
     Indication: PAIN
     Route: 048
  4. KLONOPIN [Concomitant]
     Indication: RESTLESS LEGS SYNDROME
     Route: 048
  5. SYNTHROID [Concomitant]
     Indication: THYROID DISORDER
     Route: 048
  6. PHENERGAN HCL [Concomitant]
     Indication: NAUSEA
     Route: 048
  7. CHANTIX [Concomitant]
     Indication: SMOKING CESSATION THERAPY
     Route: 065

REACTIONS (5)
  - DEPRESSION [None]
  - DRUG DEPENDENCE [None]
  - HERNIA [None]
  - INAPPROPRIATE SCHEDULE OF DRUG ADMINISTRATION [None]
  - WRONG TECHNIQUE IN DRUG USAGE PROCESS [None]
